FAERS Safety Report 8287065-4 (Version None)
Quarter: 2012Q2

REPORT INFORMATION
  Report Type: 
  Country: None (occurrence: None)
  Receive Date: 20120416
  Receipt Date: 20120402
  Transmission Date: 20120825
  Serious: Yes (Hospitalization)
  Sender: FDA-Public Use
  Company Number: FR-EISAI INC-E3810-05424-SPO-FR

PATIENT
  Sex: Female

DRUGS (21)
  1. ACETAMINOPHEN [Concomitant]
     Route: 065
     Dates: start: 20111101
  2. NITROGLYCERIN [Concomitant]
     Route: 065
  3. ZOPICLONE [Concomitant]
     Route: 065
  4. TANAKAN [Concomitant]
     Route: 065
     Dates: start: 20110207
  5. LASIX [Concomitant]
     Route: 065
  6. PERINDOPRIL ERBUMINE [Suspect]
     Route: 048
  7. FIXICAL D3 [Concomitant]
     Route: 065
  8. PROCORALAN [Concomitant]
     Route: 065
  9. PROTELOS [Concomitant]
     Dosage: UNKNOWN
     Route: 065
  10. LEXOMIL [Concomitant]
     Route: 065
     Dates: start: 20110211
  11. EQUANIL [Suspect]
     Route: 048
  12. POTASSIUM CHLORIDE [Concomitant]
     Route: 065
  13. SPASFON [Concomitant]
     Dosage: IRREGULAR
     Route: 065
  14. ORAMORPH SR [Concomitant]
     Route: 065
     Dates: start: 20111101
  15. CRESTOR [Concomitant]
     Route: 065
  16. ADALAT [Concomitant]
     Route: 065
  17. PREDNISONE [Concomitant]
     Indication: INFLAMMATORY PAIN
     Route: 065
  18. RABEPRAZOLE SODIUM [Suspect]
     Route: 048
     Dates: start: 20111201
  19. ADALAT [Suspect]
     Route: 048
     Dates: start: 20111001
  20. ASPIRIN [Concomitant]
     Route: 065
  21. TETRAZEPAM [Concomitant]
     Dosage: PUNCTUAL
     Route: 065

REACTIONS (1)
  - BONE MARROW FAILURE [None]
